FAERS Safety Report 8098658-1 (Version None)
Quarter: 2012Q1

REPORT INFORMATION
  Report Type: 
  Country: None (occurrence: None)
  Receive Date: 20120129
  Receipt Date: 20111025
  Transmission Date: 20120608
  Serious: No
  Sender: FDA-Public Use
  Company Number: US-ABBOTT-11P-163-0868893-00

PATIENT
  Age: 18 Year
  Sex: Female

DRUGS (3)
  1. FLAGYL [Concomitant]
     Indication: CROHN'S DISEASE
     Route: 042
     Dates: start: 20111025
  2. PREDNISONE TAB [Concomitant]
     Indication: CROHN'S DISEASE
  3. HUMIRA [Suspect]
     Indication: CROHN'S DISEASE
     Dosage: LOADING DOSE, PARTIAL DOSE
     Dates: start: 20111025

REACTIONS (1)
  - INJECTION SITE PAIN [None]
